FAERS Safety Report 5906792-4 (Version None)
Quarter: 2008Q4

REPORT INFORMATION
  Report Type: 
  Country: None (occurrence: None)
  Receive Date: 20081002
  Receipt Date: 20080925
  Transmission Date: 20090506
  Serious: Yes (Other)
  Sender: FDA-Public Use
  Company Number: US-JNJCH-2008025191

PATIENT
  Age: 78 Year
  Sex: Male
  Weight: 66.7 kg

DRUGS (6)
  1. BENADRYL [Suspect]
     Indication: HYPERSENSITIVITY
     Dosage: TEXT:2 TABLETS TWICE
     Route: 048
  2. PHENYTOIN SODIUM [Concomitant]
     Dosage: TEXT:2X 100MG
     Route: 065
  3. OMEPRAZOLE [Concomitant]
     Dosage: TEXT:1X 20MG
     Route: 065
  4. WARFARIN SODIUM [Concomitant]
     Dosage: TEXT:3X 2MG
     Route: 065
  5. HYDROCHLOROTHIAZIDE [Concomitant]
     Dosage: TEXT:1X 25MG
     Route: 065
  6. QUINAPRIL [Concomitant]
     Dosage: TEXT:1X 60MG
     Route: 065

REACTIONS (3)
  - BLOOD PRESSURE DECREASED [None]
  - CEREBROVASCULAR ACCIDENT [None]
  - DIZZINESS [None]
